FAERS Safety Report 5982169-0 (Version None)
Quarter: 2008Q4

REPORT INFORMATION
  Report Type: 
  Country: None (occurrence: None)
  Receive Date: 20081208
  Receipt Date: 20081125
  Transmission Date: 20090506
  Serious: Yes (Other)
  Sender: FDA-Public Use
  Company Number: US-BAYER-USA-2002-001953

PATIENT
  Age: 30 Year
  Sex: Female
  Weight: 73 kg

DRUGS (8)
  1. BETASERON [Suspect]
     Indication: SECONDARY PROGRESSIVE MULTIPLE SCLEROSIS
     Dosage: TOTAL DAILY DOSE: 0.3 MG
     Route: 058
  2. PROZAC [Concomitant]
     Indication: DEPRESSION
     Route: 048
     Dates: start: 20020601
  3. ALESSE [Concomitant]
     Indication: CONTRACEPTION
     Route: 048
     Dates: start: 20020601
  4. NOVANTRONE [Concomitant]
     Indication: MULTIPLE SCLEROSIS
     Dates: start: 20030801, end: 20050301
  5. BACLOFEN [Concomitant]
     Indication: MUSCLE SPASTICITY
     Dosage: AS USED: 80 MG
     Route: 048
     Dates: start: 20020101
  6. WELLBUTRIN XL [Concomitant]
     Indication: DEPRESSION
     Dosage: AS USED: 150 MG
     Route: 048
     Dates: start: 20040101
  7. NEURONTIN [Concomitant]
     Indication: MUSCLE SPASMS
     Dosage: AS USED: 600 MG
     Route: 048
     Dates: start: 20080101
  8. YASMIN [Concomitant]
     Indication: CONTRACEPTION
     Route: 048
     Dates: start: 20060101

REACTIONS (4)
  - DEPRESSION [None]
  - HAEMATOCHEZIA [None]
  - RECTAL CANCER [None]
  - WEIGHT DECREASED [None]
